FAERS Safety Report 4356937-5 (Version None)
Quarter: 2004Q2

REPORT INFORMATION
  Report Type: 
  Country: None (occurrence: None)
  Receive Date: 20040507
  Receipt Date: 20040428
  Transmission Date: 20050107
  Serious: Yes (Hospitalization)
  Sender: FDA-Public Use
  Company Number: JP-JNJFOC-20040405814

PATIENT
  Age: 48 Year
  Sex: Male

DRUGS (3)
  1. LEVOFLOXACIN [Suspect]
     Indication: OSTEITIS
  2. AUGMENTIN [Suspect]
     Indication: OSTEITIS
  3. ZYVOX [Suspect]
     Indication: OSTEITIS
     Dosage: ORAL
     Route: 048

REACTIONS (1)
  - NEUROPATHY PERIPHERAL [None]
